FAERS Safety Report 17597412 (Version 7)
Quarter: 2022Q3

REPORT INFORMATION
  Report Type: Spontaneous
  Country: CA (occurrence: CA)
  Receive Date: 20200330
  Receipt Date: 20220808
  Transmission Date: 20221027
  Serious: Yes (Other)
  Sender: FDA-Public Use
  Company Number: CA-SA-2020SA068814

PATIENT
  Age: 59 Year
  Sex: Female

DRUGS (25)
  1. DESOXIMETASONE [Suspect]
     Active Substance: DESOXIMETASONE
     Indication: Product used for unknown indication
     Dosage: UNK
     Route: 048
  2. ARAVA [Suspect]
     Active Substance: LEFLUNOMIDE
     Indication: Rheumatoid arthritis
     Dosage: UNK
  3. ARAVA [Suspect]
     Active Substance: LEFLUNOMIDE
     Route: 065
  4. LEFLUNOMIDE [Suspect]
     Active Substance: LEFLUNOMIDE
     Indication: Rheumatoid arthritis
     Dosage: 20 MG, QD (1 IN 1 DAY)
     Route: 065
  5. LEFLUNOMIDE [Suspect]
     Active Substance: LEFLUNOMIDE
     Dosage: 1 DF, QD (1 IN 1 DAY)
  6. LEFLUNOMIDE [Suspect]
     Active Substance: LEFLUNOMIDE
     Dosage: 20 MG
     Route: 065
  7. LEFLUNOMIDE [Suspect]
     Active Substance: LEFLUNOMIDE
     Dosage: 1 DF
     Route: 065
  8. PLAQUENIL [Suspect]
     Active Substance: HYDROXYCHLOROQUINE SULFATE
     Indication: Rheumatoid arthritis
     Dosage: UNK
     Route: 065
  9. PREDNISONE [Suspect]
     Active Substance: PREDNISONE
     Indication: Rheumatoid arthritis
     Dosage: 5 MG
     Route: 065
  10. HYDROXYCHLOROQUINE [Suspect]
     Active Substance: HYDROXYCHLOROQUINE
     Indication: Rheumatoid arthritis
     Dosage: 200 MG, QD
     Route: 065
  11. HYDROXYCHLOROQUINE [Suspect]
     Active Substance: HYDROXYCHLOROQUINE
     Indication: Product used for unknown indication
     Dosage: 200 MG
     Route: 065
  12. METHOTREXATE [Suspect]
     Active Substance: METHOTREXATE
     Indication: Rheumatoid arthritis
     Dosage: UNK
  13. METHOTREXATE [Suspect]
     Active Substance: METHOTREXATE
     Indication: Pulmonary fibrosis
     Dosage: UNK
     Route: 065
  14. METHOTREXATE [Suspect]
     Active Substance: METHOTREXATE
     Route: 065
  15. ENBREL [Suspect]
     Active Substance: ETANERCEPT
     Indication: Rheumatoid arthritis
     Dosage: 50 MG, QW (1 IN 1 WK)
     Route: 065
  16. ENBREL [Suspect]
     Active Substance: ETANERCEPT
     Route: 065
  17. ENBREL [Suspect]
     Active Substance: ETANERCEPT
     Route: 065
  18. ENBREL [Suspect]
     Active Substance: ETANERCEPT
     Dosage: UNK
  19. ORENCIA [Suspect]
     Active Substance: ABATACEPT
     Indication: Rheumatoid arthritis
     Dosage: UNK
     Route: 042
  20. ORENCIA [Suspect]
     Active Substance: ABATACEPT
     Indication: Product used for unknown indication
     Dosage: UNK
     Route: 058
  21. ORENCIA [Suspect]
     Active Substance: ABATACEPT
     Route: 042
  22. ORENCIA [Suspect]
     Active Substance: ABATACEPT
     Route: 058
  23. ORENCIA [Suspect]
     Active Substance: ABATACEPT
     Dosage: UNK
     Route: 058
     Dates: start: 20131130, end: 20150730
  24. XELJANZ [Concomitant]
     Active Substance: TOFACITINIB CITRATE
     Indication: Rheumatoid arthritis
     Dosage: UNK
     Route: 065
  25. XELJANZ [Concomitant]
     Active Substance: TOFACITINIB CITRATE
     Route: 065

REACTIONS (6)
  - Treatment failure [Unknown]
  - Drug intolerance [Unknown]
  - Joint swelling [Unknown]
  - Pulmonary fibrosis [Unknown]
  - Off label use [Unknown]
  - Drug ineffective [Unknown]
